FAERS Safety Report 9678850 (Version 3)
Quarter: 2014Q1

REPORT INFORMATION
  Report Type: Report from Study
  Country: KR (occurrence: KR)
  Receive Date: 20131108
  Receipt Date: 20140225
  Transmission Date: 20141002
  Serious: Yes (Hospitalization)
  Sender: FDA-Public Use
  Company Number: KR-BRISTOL-MYERS SQUIBB COMPANY-19722776

PATIENT
  Age: 59 Year
  Sex: Male
  Weight: 62.5 kg

DRUGS (2)
  1. IPILIMUMAB [Suspect]
     Indication: GASTROOESOPHAGEAL CANCER
     Dosage: TOTAL DOSE: 633MG
     Route: 042
     Dates: start: 20130813, end: 20131015
  2. HYDROCORTISONE SODIUM SUCCINATE [Concomitant]

REACTIONS (1)
  - Dizziness [Recovered/Resolved]
